FAERS Safety Report 9249755 (Version 1)
Quarter: 2013Q2

REPORT INFORMATION
  Report Type: Spontaneous
  Country: US (occurrence: US)
  Receive Date: 20130423
  Receipt Date: 20130423
  Transmission Date: 20140414
  Serious: No
  Sender: FDA-Public Use
  Company Number: US-TEVA-400034USA

PATIENT
  Sex: Female

DRUGS (2)
  1. ACTIQ [Suspect]
     Indication: PAIN
     Route: 048
     Dates: start: 2006
  2. DILAUDID [Suspect]

REACTIONS (5)
  - Malnutrition [Unknown]
  - Nausea [Unknown]
  - Vomiting [Unknown]
  - Weight gain poor [Unknown]
  - Off label use [Unknown]
